FAERS Safety Report 14859714 (Version 20)
Quarter: 2020Q3

REPORT INFORMATION
  Report Type: Spontaneous
  Country: US (occurrence: US)
  Receive Date: 20180508
  Receipt Date: 20200731
  Transmission Date: 20201102
  Serious: Yes (Hospitalization)
  Sender: FDA-Public Use
  Company Number: US-PFIZER INC-2018186005

PATIENT
  Age: 62 Year
  Sex: Male
  Weight: 113 kg

DRUGS (5)
  1. ASPIRIN. [Concomitant]
     Active Substance: ASPIRIN
     Dosage: 81 MG, 1X/DAY
     Route: 048
  2. LYRICA [Suspect]
     Active Substance: PREGABALIN
     Indication: FIBROMYALGIA
     Dosage: 150 MG, 3X/DAY
     Route: 048
     Dates: start: 2010
  3. LYRICA [Suspect]
     Active Substance: PREGABALIN
     Indication: NEUROPATHY PERIPHERAL
     Dosage: 150 MG, 3X/DAY
     Route: 048
     Dates: start: 20180607, end: 20180704
  4. LYRICA [Suspect]
     Active Substance: PREGABALIN
     Indication: MYOFASCIAL PAIN SYNDROME
     Dosage: 150 MG, 3X/DAY (EVERY 8 HOURS FOR 90 DAYS)
     Route: 048
  5. LYRICA [Suspect]
     Active Substance: PREGABALIN
     Indication: PAIN

REACTIONS (13)
  - Blood test abnormal [Unknown]
  - Gastric disorder [Recovered/Resolved]
  - Hyperhidrosis [Unknown]
  - Pain [Unknown]
  - Hypoaesthesia [Unknown]
  - Confusional state [Unknown]
  - Mobility decreased [Unknown]
  - Dysstasia [Unknown]
  - Pain in extremity [Unknown]
  - Peripheral swelling [Unknown]
  - Dysphonia [Unknown]
  - Limb discomfort [Unknown]
  - Gait disturbance [Unknown]

NARRATIVE: CASE EVENT DATE: 201806
